FAERS Safety Report 18407798 (Version 1)
Quarter: 2020Q4

REPORT INFORMATION
  Report Type: Spontaneous
  Country: CH (occurrence: CH)
  Receive Date: 20201021
  Receipt Date: 20201021
  Transmission Date: 20210114
  Serious: Yes (Hospitalization)
  Sender: FDA-Public Use
  Company Number: CH-TEVA-2020-CH-1839960

PATIENT
  Age: 59 Year
  Sex: Male
  Weight: 108 kg

DRUGS (10)
  1. MABTHERA [Suspect]
     Active Substance: RITUXIMAB
     Dosage: CYCLICAL
     Route: 041
     Dates: start: 2020
  2. VALDOXAN [Concomitant]
     Active Substance: AGOMELATINE
     Route: 048
  3. CISPLATIN TEVA [Suspect]
     Active Substance: CISPLATIN
     Dosage: CYCLICAL
     Route: 041
     Dates: start: 20200925
  4. GEMCITABIN TEVA [Suspect]
     Active Substance: GEMCITABINE\GEMCITABINE HYDROCHLORIDE
     Dosage: CYCLICAL
     Route: 041
     Dates: start: 20200925
  5. PANTOZOL [Concomitant]
     Active Substance: PANTOPRAZOLE SODIUM
     Route: 048
  6. CIPRALEX [Concomitant]
     Active Substance: ESCITALOPRAM OXALATE
     Route: 048
  7. DUROGESIC [Concomitant]
     Active Substance: FENTANYL
     Dosage: DUROGESIC MATRIX 12 UG/H
     Route: 062
  8. ZYLORIC [Concomitant]
     Active Substance: ALLOPURINOL
     Route: 048
  9. NOPIL [Concomitant]
     Active Substance: SULFAMETHOXAZOLE\TRIMETHOPRIM
     Dosage: NOPIL FORTE 800/160 MG
     Route: 048
  10. VALTREX [Concomitant]
     Active Substance: VALACYCLOVIR HYDROCHLORIDE
     Route: 048

REACTIONS (3)
  - Bradycardia [Recovered/Resolved]
  - Syncope [Recovered/Resolved]
  - Orthostatic hypotension [Recovered/Resolved]

NARRATIVE: CASE EVENT DATE: 20200927
